FAERS Safety Report 25794145 (Version 1)
Quarter: 2025Q3

REPORT INFORMATION
  Report Type: Report from Study
  Country: US (occurrence: US)
  Receive Date: 20250912
  Receipt Date: 20250912
  Transmission Date: 20251021
  Serious: No
  Sender: SUNOVION
  Company Number: US-SMPA-2025SPA011408

PATIENT
  Age: 69 Year
  Sex: Male

DRUGS (26)
  1. ORGOVYX [Suspect]
     Active Substance: RELUGOLIX
     Indication: Product used for unknown indication
     Route: 048
     Dates: start: 20240606, end: 20240606
  2. ORGOVYX [Suspect]
     Active Substance: RELUGOLIX
     Route: 048
  3. CHLORTHALIDONE [Concomitant]
     Active Substance: CHLORTHALIDONE
  4. ATORVASTATIN [Concomitant]
     Active Substance: ATORVASTATIN
  5. ACETAMINOPHEN [Concomitant]
     Active Substance: ACETAMINOPHEN
  6. Antifungal [Concomitant]
  7. GABAPENTIN [Concomitant]
     Active Substance: GABAPENTIN
  8. LANTUS [Concomitant]
     Active Substance: INSULIN GLARGINE
  9. LIDOCAINE [Concomitant]
     Active Substance: LIDOCAINE
  10. LISINOPRIL [Concomitant]
     Active Substance: LISINOPRIL
  11. METFORMIN [Concomitant]
     Active Substance: METFORMIN HYDROCHLORIDE
  12. NAPROXEN [Concomitant]
     Active Substance: NAPROXEN
  13. NIFEDIPINE [Concomitant]
     Active Substance: NIFEDIPINE
  14. SILDENAFIL [Concomitant]
     Active Substance: SILDENAFIL
  15. TIZANIDINE [Concomitant]
     Active Substance: TIZANIDINE
  16. VALACYCLOVIR [Concomitant]
     Active Substance: VALACYCLOVIR HYDROCHLORIDE
  17. BUSPIRONE HCL [Concomitant]
     Active Substance: BUSPIRONE HYDROCHLORIDE
  18. INSULIN NOS [Concomitant]
     Active Substance: INSULIN NOS
  19. VITAMINS [Concomitant]
     Active Substance: VITAMINS
  20. VITAMIN B12 [Concomitant]
     Active Substance: CYANOCOBALAMIN
  21. VITAMIN C [Concomitant]
     Active Substance: ASCORBIC ACID
  22. JARDIANCE [Concomitant]
     Active Substance: EMPAGLIFLOZIN
  23. TYLENOL [Concomitant]
     Active Substance: ACETAMINOPHEN
  24. OXYCODONE [Concomitant]
     Active Substance: OXYCODONE
  25. CYCLOBENZAPRINE [Concomitant]
     Active Substance: CYCLOBENZAPRINE
  26. STIMULANT LAXATIVE PLUS STOOL SOFTENER [Concomitant]
     Active Substance: DOCUSATE SODIUM\SENNOSIDES

REACTIONS (4)
  - Urinary incontinence [Unknown]
  - Feeling abnormal [Unknown]
  - Night sweats [Unknown]
  - Diarrhoea [Unknown]
